FAERS Safety Report 10960723 (Version 1)
Quarter: 2015Q1

REPORT INFORMATION
  Report Type: Spontaneous
  Country: US (occurrence: None)
  Receive Date: 20150326
  Receipt Date: 20150326
  Transmission Date: 20150721
  Serious: No
  Sender: FDA-Public Use
  Company Number: None

PATIENT
  Age: 69 Year
  Sex: Female

DRUGS (1)
  1. ESOMEPRAZOLE [Suspect]
     Active Substance: ESOMEPRAZOLE
     Indication: BARRETT^S OESOPHAGUS
     Dosage: 1 CAPSULE BID ORAL
     Route: 048
     Dates: start: 20150311, end: 20150324

REACTIONS (6)
  - Drug ineffective [None]
  - Condition aggravated [None]
  - Product quality issue [None]
  - Sleep disorder due to general medical condition, insomnia type [None]
  - Product substitution issue [None]
  - Barrett^s oesophagus [None]

NARRATIVE: CASE EVENT DATE: 20150325
